FAERS Safety Report 18122020 (Version 1)
Quarter: 2020Q3

REPORT INFORMATION
  Report Type: Spontaneous
  Country: US (occurrence: US)
  Receive Date: 20200806
  Receipt Date: 20200806
  Transmission Date: 20201103
  Serious: No
  Sender: FDA-Public Use
  Company Number: US-ASTRAZENECA-2020SE96659

PATIENT
  Sex: Female

DRUGS (2)
  1. PREDNISONE. [Concomitant]
     Active Substance: PREDNISONE
     Dates: start: 202007
  2. FASENRA [Suspect]
     Active Substance: BENRALIZUMAB
     Dosage: 30.0MG UNKNOWN
     Route: 058
     Dates: start: 20200701

REACTIONS (5)
  - Arthralgia [Unknown]
  - Pruritus [Unknown]
  - Rash macular [Unknown]
  - Wheezing [Unknown]
  - Body temperature decreased [Unknown]

NARRATIVE: CASE EVENT DATE: 202007
